FAERS Safety Report 4619076-1 (Version None)
Quarter: 2005Q1

REPORT INFORMATION
  Report Type: 
  Country: None (occurrence: None)
  Receive Date: 20050318
  Receipt Date: 20050318
  Transmission Date: 20050727
  Serious: Yes (Hospitalization)
  Sender: FDA-Public Use
  Company Number: None

PATIENT
  Sex: Female
  Weight: 63.5036 kg

DRUGS (1)
  1. DIGOXIN [Suspect]
     Indication: CARDIAC DISORDER
     Dosage: PO [PRIOR TO ADMISSION]
     Route: 048

REACTIONS (3)
  - CARDIOACTIVE DRUG LEVEL INCREASED [None]
  - FALL [None]
  - UPPER LIMB FRACTURE [None]
